FAERS Safety Report 9716176 (Version 1)
Quarter: 2013Q4

REPORT INFORMATION
  Report Type: Spontaneous
  Country: US (occurrence: US)
  Receive Date: 20131127
  Receipt Date: 20131127
  Transmission Date: 20140711
  Serious: Yes (Other)
  Sender: FDA-Public Use
  Company Number: US-BAYER-2013-142936

PATIENT
  Sex: Female

DRUGS (1)
  1. MIRENA [Suspect]
     Indication: CONTRACEPTION
     Dosage: 20 ?G/D, CONT
     Route: 015
     Dates: start: 20130918, end: 2013

REACTIONS (8)
  - Dizziness [None]
  - Abdominal pain lower [None]
  - Bedridden [None]
  - Vaginal odour [None]
  - Device dislocation [None]
  - Groin pain [None]
  - Arthralgia [None]
  - Sciatic nerve injury [None]
